FAERS Safety Report 4309729-7 (Version None)
Quarter: 2004Q1

REPORT INFORMATION
  Report Type: 
  Country: None (occurrence: None)
  Receive Date: 20040301
  Receipt Date: 20040218
  Transmission Date: 20041129
  Serious: Yes (Death, Hospitalization)
  Sender: FDA-Public Use
  Company Number: 163-20785-03050213

PATIENT
  Age: 57 Year
  Sex: Male

DRUGS (3)
  1. THALOMID [Suspect]
     Indication: HEPATIC CANCER METASTATIC
     Dosage: SEE IMAGE
     Route: 048
     Dates: start: 20030429, end: 20030625
  2. THALOMID [Suspect]
     Indication: HEPATIC CANCER METASTATIC
     Dosage: SEE IMAGE
     Route: 048
     Dates: start: 20030501
  3. XELODA [Concomitant]

REACTIONS (5)
  - DIZZINESS [None]
  - GANGRENE [None]
  - LEG AMPUTATION [None]
  - NEUROPATHY [None]
  - PAIN IN EXTREMITY [None]
